FAERS Safety Report 9054945 (Version 1)
Quarter: 2013Q1

REPORT INFORMATION
  Report Type: Report from Study
  Country: US (occurrence: US)
  Receive Date: 20130208
  Receipt Date: 20130208
  Transmission Date: 20140127
  Serious: Yes (Hospitalization)
  Sender: FDA-Public Use
  Company Number: US-ABBOTT-13P-163-1044548-00

PATIENT
  Age: 54 None
  Sex: Male

DRUGS (1)
  1. HUMIRA PEN [Suspect]
     Indication: ANKYLOSING SPONDYLITIS
     Route: 058
     Dates: start: 20110823, end: 20130116

REACTIONS (6)
  - Cardiac disorder [Unknown]
  - Dyspnoea [Unknown]
  - Lymphadenopathy [Unknown]
  - Fluid retention [Unknown]
  - Night sweats [Not Recovered/Not Resolved]
  - Infection [Unknown]
